FAERS Safety Report 8267020-0 (Version None)
Quarter: 2012Q2

REPORT INFORMATION
  Report Type: 
  Country: None (occurrence: None)
  Receive Date: 20120409
  Receipt Date: 20120403
  Transmission Date: 20120825
  Serious: No
  Sender: FDA-Public Use
  Company Number: US-PFIZER INC-2012084683

PATIENT
  Sex: Male

DRUGS (3)
  1. WELLBUTRIN [Concomitant]
     Dosage: UNK
  2. PRISTIQ [Suspect]
     Dosage: UNK
  3. KLONOPIN [Concomitant]
     Dosage: UNK

REACTIONS (2)
  - ANXIETY [None]
  - TINNITUS [None]
